FAERS Safety Report 7898337-7 (Version None)
Quarter: 2011Q4

REPORT INFORMATION
  Report Type: 
  Country: None (occurrence: None)
  Receive Date: 20111103
  Receipt Date: 20111101
  Transmission Date: 20120403
  Serious: Yes (Hospitalization, Other)
  Sender: FDA-Public Use
  Company Number: AUR-APL-2011-05610

PATIENT
  Age: 58 Year
  Sex: Male

DRUGS (11)
  1. ZIDOVUDINE [Suspect]
     Indication: ANTIVIRAL TREATMENT
     Dates: start: 20000101, end: 20030101
  2. LAMIVUDINE(PEPFAR) [Suspect]
     Indication: ANTIVIRAL TREATMENT
     Dates: start: 20000101, end: 20030101
  3. TENOFOVIR DISOPROXIL FUMARATE [Suspect]
     Indication: ANTIVIRAL TREATMENT
  4. DIDANOSINE [Suspect]
     Indication: ANTIVIRAL TREATMENT
  5. NELFINAVIR MESYLATE [Suspect]
     Indication: ANTIVIRAL TREATMENT
     Dates: start: 20000101, end: 20030101
  6. STAVUDINE [Suspect]
     Indication: ANTIVIRAL TREATMENT
  7. STAVUDINE [Suspect]
     Indication: ANTIVIRAL TREATMENT
  8. EFAVIRENZ [Suspect]
     Indication: ANTIVIRAL TREATMENT
  9. ATAZANAVIR SULFATE AND RITONAVIR [Suspect]
     Indication: ANTIVIRAL TREATMENT
  10. ABACAVIR [Suspect]
     Indication: ANTIVIRAL TREATMENT
  11. ATAZANAVIR SULFATE AND RITONAVIR [Suspect]
     Indication: ANTIVIRAL TREATMENT

REACTIONS (14)
  - HYPOPHOSPHATAEMIA [None]
  - CHOLESTASIS [None]
  - PORTAL HYPERTENSION [None]
  - VIROLOGIC FAILURE [None]
  - LIPOATROPHY [None]
  - ASCITES [None]
  - HAEMATOTOXICITY [None]
  - IRON DEFICIENCY ANAEMIA [None]
  - OESOPHAGEAL VARICES HAEMORRHAGE [None]
  - SPLENOMEGALY [None]
  - PROTEINURIA [None]
  - PORTAL VEIN THROMBOSIS [None]
  - TRANSAMINASES INCREASED [None]
  - LIVER DISORDER [None]
